FAERS Safety Report 5033114-6 (Version None)
Quarter: 2006Q2

REPORT INFORMATION
  Report Type: 
  Country: None (occurrence: None)
  Receive Date: 20060505
  Receipt Date: 20050630
  Transmission Date: 20061013
  Serious: Yes (Hospitalization)
  Sender: FDA-Public Use
  Company Number: PHEH2005US06536

PATIENT
  Age: 77 Year
  Sex: Female
  Weight: 59.4 kg

DRUGS (6)
  1. DIOVAN HCT [Suspect]
     Indication: HYPERTENSION
  2. DIOVAN HCT [Suspect]
     Indication: HYPERTENSION
     Dosage: 160 MG, ORAL
     Route: 048
     Dates: start: 20031012, end: 20050414
  3. COMBIVENT (IPRATROPIUM BROMIDE, SALBUTAMOL) [Concomitant]
  4. XANAX [Concomitant]
  5. PREMARIN [Concomitant]
  6. ADVAIR (FLUCTICASONE PROPIONATE, SALMETEROL XINAFOATE) [Concomitant]

REACTIONS (2)
  - DYSPNOEA [None]
  - SWELLING FACE [None]
